FAERS Safety Report 5804791-4 (Version None)
Quarter: 2008Q3

REPORT INFORMATION
  Report Type: 
  Country: None (occurrence: None)
  Receive Date: 20080709
  Receipt Date: 20080630
  Transmission Date: 20090109
  Serious: Yes (Other)
  Sender: FDA-Public Use
  Company Number: FR-AVENTIS-200812475FR

PATIENT
  Age: 8 Year
  Sex: Male
  Weight: 28 kg

DRUGS (7)
  1. FLAGYL [Suspect]
     Indication: CROHN'S DISEASE
     Route: 048
     Dates: start: 20080516, end: 20080524
  2. FLAGYL [Suspect]
     Route: 048
     Dates: start: 20080526, end: 20080613
  3. PENTASA [Suspect]
     Indication: CROHN'S DISEASE
     Route: 048
     Dates: start: 20080526, end: 20080613
  4. CIFLOX                             /00697201/ [Suspect]
     Indication: CROHN'S DISEASE
     Route: 048
     Dates: start: 20080516, end: 20080524
  5. CIFLOX                             /00697201/ [Suspect]
     Route: 048
     Dates: start: 20080526, end: 20080613
  6. OMEPRAZOLE [Suspect]
     Indication: CROHN'S DISEASE
     Route: 048
     Dates: start: 20080516, end: 20080613
  7. SOLU-MEDROL [Concomitant]
     Indication: CROHN'S DISEASE
     Dates: start: 20080516

REACTIONS (3)
  - ALANINE AMINOTRANSFERASE INCREASED [None]
  - ASPARTATE AMINOTRANSFERASE INCREASED [None]
  - HEPATOMEGALY [None]
